FAERS Safety Report 17446124 (Version 6)
Quarter: 2020Q3

REPORT INFORMATION
  Report Type: Report from Study
  Country: US (occurrence: US)
  Receive Date: 20200221
  Receipt Date: 20200910
  Transmission Date: 20201102
  Serious: No
  Sender: FDA-Public Use
  Company Number: NVSC2020US048046

PATIENT
  Age: 62 Year
  Sex: Female

DRUGS (3)
  1. COSENTYX [Suspect]
     Active Substance: SECUKINUMAB
     Dosage: UNK
     Route: 065
  2. COSENTYX [Suspect]
     Active Substance: SECUKINUMAB
     Dosage: UNK
     Route: 065
  3. COSENTYX [Suspect]
     Active Substance: SECUKINUMAB
     Indication: PSORIASIS
     Dosage: UNK
     Route: 065

REACTIONS (10)
  - Migraine [Unknown]
  - Infection [Unknown]
  - Rash [Unknown]
  - Skin haemorrhage [Unknown]
  - Oral candidiasis [Unknown]
  - Rhinorrhoea [Unknown]
  - Urinary tract infection [Unknown]
  - Psoriasis [Not Recovered/Not Resolved]
  - Injection site pain [Unknown]
  - Drug ineffective [Unknown]
